FAERS Safety Report 11441797 (Version 2)
Quarter: 2015Q3

REPORT INFORMATION
  Report Type: Report from Study
  Country: DE (occurrence: DE)
  Receive Date: 20150901
  Receipt Date: 20150917
  Transmission Date: 20151125
  Serious: Yes (Death)
  Sender: FDA-Public Use
  Company Number: DE-CELGENE-DEU-2015085058

PATIENT
  Age: 69 Year
  Sex: Female
  Weight: 79 kg

DRUGS (11)
  1. TORASEMIDE [Concomitant]
     Active Substance: TORSEMIDE
     Indication: OEDEMA
  2. BISOPROLOL [Concomitant]
     Active Substance: BISOPROLOL
     Indication: HYPERTENSION
  3. REVLIMID [Suspect]
     Active Substance: LENALIDOMIDE
     Indication: PLASMA CELL MYELOMA
     Dosage: 5 MILLIGRAM
     Route: 048
     Dates: start: 20131218, end: 20150816
  4. BISOPROLOL [Concomitant]
     Active Substance: BISOPROLOL
     Indication: HYPERTONIA
     Dosage: 5 MILLIGRAM
     Route: 065
     Dates: end: 20150816
  5. DIGITOXIN [Concomitant]
     Active Substance: DIGITOXIN
     Indication: ATRIAL FIBRILLATION
     Dosage: 20 MILLIGRAM
     Route: 065
     Dates: end: 20150816
  6. IRBESARTAN. [Concomitant]
     Active Substance: IRBESARTAN
     Indication: ESSENTIAL HYPERTENSION
     Dosage: 10 MILLIGRAM
     Route: 065
     Dates: end: 20150816
  7. DIGIMERCK [Concomitant]
     Active Substance: DIGITOXIN
     Indication: ATRIAL FIBRILLATION
     Route: 065
     Dates: end: 20150816
  8. TORASEMIDE [Concomitant]
     Active Substance: TORSEMIDE
     Indication: HYPERTENSION
     Route: 065
     Dates: end: 20150816
  9. XARELTO [Concomitant]
     Active Substance: RIVAROXABAN
     Indication: EMBOLISM VENOUS
     Dosage: 150 MILLIGRAM
     Route: 065
     Dates: end: 20150816
  10. RIVAROXABAN [Concomitant]
     Active Substance: RIVAROXABAN
     Indication: ATRIAL FIBRILLATION
     Route: 065
     Dates: end: 20150816
  11. RIVAROXABAN [Concomitant]
     Active Substance: RIVAROXABAN
     Indication: THROMBOSIS PROPHYLAXIS

REACTIONS (2)
  - Right ventricular failure [Fatal]
  - Pulmonary embolism [Fatal]

NARRATIVE: CASE EVENT DATE: 20150816
